FAERS Safety Report 7327181-4 (Version None)
Quarter: 2011Q1

REPORT INFORMATION
  Report Type: 
  Country: None (occurrence: None)
  Receive Date: 20110302
  Receipt Date: 20110222
  Transmission Date: 20110831
  Serious: Yes (Other)
  Sender: FDA-Public Use
  Company Number: DE-BAXTER-2011BH004896

PATIENT

DRUGS (1)
  1. FEIBA [Suspect]
     Indication: PROPHYLAXIS
     Route: 065

REACTIONS (1)
  - BLOOD FIBRINOGEN DECREASED [None]
